FAERS Safety Report 22381077 (Version 2)
Quarter: 2023Q2

REPORT INFORMATION
  Report Type: Report from Study
  Country: US (occurrence: US)
  Receive Date: 20230530
  Receipt Date: 20230601
  Transmission Date: 20230722
  Serious: No
  Sender: FDA-Public Use
  Company Number: US-002147023-NVSC2023US118072

PATIENT
  Age: 31 Year
  Sex: Male
  Weight: 74.84 kg

DRUGS (2)
  1. COSENTYX [Suspect]
     Active Substance: SECUKINUMAB
     Indication: Product used for unknown indication
     Dosage: UNK
     Route: 065
     Dates: start: 201905, end: 202305
  2. CLOBETASOL [Suspect]
     Active Substance: CLOBETASOL
     Indication: Product used for unknown indication
     Dosage: 200 MG, PRN
     Route: 061
     Dates: start: 201905

REACTIONS (3)
  - Condition aggravated [Not Recovered/Not Resolved]
  - Skin exfoliation [Not Recovered/Not Resolved]
  - Rash macular [Not Recovered/Not Resolved]

NARRATIVE: CASE EVENT DATE: 20220522
